FAERS Safety Report 14001826 (Version 1)
Quarter: 2017Q3

REPORT INFORMATION
  Report Type: Spontaneous
  Country: FR (occurrence: FR)
  Receive Date: 20170922
  Receipt Date: 20170922
  Transmission Date: 20171128
  Serious: Yes (Other)
  Sender: FDA-Public Use
  Company Number: FR-MERCK KGAA-2027394

PATIENT
  Age: 60 Year
  Sex: Female

DRUGS (3)
  1. NOVOTHYROX [Suspect]
     Active Substance: LEVOTHYROXINE SODIUM
  2. NOVOTHYROX [Suspect]
     Active Substance: LEVOTHYROXINE SODIUM
     Indication: PRODUCT USED FOR UNKNOWN INDICATION
  3. NOVOTHYROX [Suspect]
     Active Substance: LEVOTHYROXINE SODIUM

REACTIONS (7)
  - Hyperthyroidism [None]
  - Swelling face [None]
  - Peripheral swelling [None]
  - Malaise [None]
  - Headache [None]
  - Blood thyroid stimulating hormone decreased [None]
  - Hyperhidrosis [None]

NARRATIVE: CASE EVENT DATE: 20170809
